FAERS Safety Report 11832698 (Version 1)
Quarter: 2015Q4

REPORT INFORMATION
  Report Type: Spontaneous
  Country: BR (occurrence: BR)
  Receive Date: 20151214
  Receipt Date: 20151214
  Transmission Date: 20160305
  Serious: Yes (Death, Life-Threatening, Hospitalization, Other)
  Sender: FDA-Public Use
  Company Number: BR-ELI_LILLY_AND_COMPANY-BR201511009288

PATIENT
  Age: 68 Year
  Sex: Male
  Weight: 79 kg

DRUGS (2)
  1. ALIMTA [Suspect]
     Active Substance: PEMETREXED DISODIUM
     Indication: LUNG CANCER METASTATIC
     Dosage: 993.5 MG, CYCLICAL
     Route: 042
     Dates: start: 20150304
  2. FAULDCARBO [Concomitant]
     Active Substance: CARBOPLATIN
     Indication: LUNG NEOPLASM MALIGNANT
     Dosage: 618.75 MG, CYCLICAL
     Route: 042
     Dates: start: 20150304

REACTIONS (9)
  - Thrombocytopenia [Unknown]
  - Lung infiltration [Unknown]
  - Escherichia bacteraemia [Unknown]
  - Neutropenia [Unknown]
  - Respiratory failure [Unknown]
  - Death [Fatal]
  - Febrile neutropenia [Not Recovered/Not Resolved]
  - Off label use [Unknown]
  - Mucosal inflammation [Not Recovered/Not Resolved]

NARRATIVE: CASE EVENT DATE: 20150429
